FAERS Safety Report 9336945 (Version 1)
Quarter: 2013Q2

REPORT INFORMATION
  Report Type: Spontaneous
  Country: US (occurrence: US)
  Receive Date: 20130607
  Receipt Date: 20130607
  Transmission Date: 20140414
  Serious: Yes (Other)
  Sender: FDA-Public Use
  Company Number: US-BRISTOL-MYERS SQUIBB COMPANY-18966432

PATIENT
  Sex: Male

DRUGS (3)
  1. BYETTA [Suspect]
     Indication: TYPE 2 DIABETES MELLITUS
     Dosage: 5 MCG BID FOR A SHORT WHILE AND TITRATED UP TO THE 10 MCG
  2. JANUVIA [Suspect]
  3. VICTOZA [Suspect]

REACTIONS (1)
  - Pancreatic carcinoma [Unknown]
